FAERS Safety Report 12959046 (Version 1)
Quarter: 2016Q4

REPORT INFORMATION
  Report Type: Spontaneous
  Country: GB (occurrence: GB)
  Receive Date: 20161121
  Receipt Date: 20161121
  Transmission Date: 20170207
  Serious: Yes (Other)
  Sender: FDA-Public Use
  Company Number: GB-AMGEN-GBRSP2016161661

PATIENT
  Age: 59 Year
  Sex: Female

DRUGS (6)
  1. VITAMIN B12 [Concomitant]
     Active Substance: CYANOCOBALAMIN
     Dosage: UNK
  2. OXYCONTIN [Concomitant]
     Active Substance: OXYCODONE HYDROCHLORIDE
     Dosage: UNK
  3. REPATHA [Suspect]
     Active Substance: EVOLOCUMAB
     Indication: HYPERCHOLESTEROLAEMIA
     Dosage: UNK, Q2WK
     Route: 065
     Dates: start: 20160830, end: 20160913
  4. GABAPENTIN. [Concomitant]
     Active Substance: GABAPENTIN
     Dosage: UNK
  5. ASPIRIN. [Concomitant]
     Active Substance: ASPIRIN
     Dosage: UNK
  6. ZOTON [Concomitant]
     Active Substance: LANSOPRAZOLE
     Dosage: UNK

REACTIONS (22)
  - Disorientation [Unknown]
  - Alopecia [Unknown]
  - Abdominal pain upper [Unknown]
  - Palpitations [Unknown]
  - Eczema [Recovered/Resolved]
  - Confusional state [Unknown]
  - Pain in extremity [Unknown]
  - Nausea [Unknown]
  - Cold sweat [Unknown]
  - Dyspnoea [Unknown]
  - Asthenia [Unknown]
  - Pain [Unknown]
  - Dysgeusia [Unknown]
  - Dry skin [Unknown]
  - Rhinitis [Unknown]
  - Visual impairment [Unknown]
  - Muscle spasms [Unknown]
  - Chest discomfort [Unknown]
  - Headache [Unknown]
  - Muscle spasticity [Not Recovered/Not Resolved]
  - Arthralgia [Unknown]
  - Dizziness [Unknown]
